FAERS Safety Report 4778110-9 (Version None)
Quarter: 2005Q3

REPORT INFORMATION
  Report Type: 
  Country: None (occurrence: None)
  Receive Date: 20050923
  Receipt Date: 20050923
  Transmission Date: 20060218
  Serious: Yes (Other)
  Sender: FDA-Public Use
  Company Number: None

PATIENT
  Sex: Female
  Weight: 23 kg

DRUGS (16)
  1. CYTARABINE [Suspect]
     Indication: B PRECURSOR TYPE ACUTE LEUKAEMIA
     Dosage: SEE IMAGE
     Dates: start: 20050913, end: 20050913
  2. VINCRISTINE [Suspect]
     Dosage: SEE IMAGE
     Route: 042
     Dates: start: 20050913, end: 20050913
  3. DEXAMETHASONE [Suspect]
     Dosage: SEE IMAGE
     Route: 048
     Dates: start: 20050913
  4. PEG ASPARAGINASE [Suspect]
     Dosage: SEE IMAGE
     Route: 030
     Dates: start: 20050916, end: 20050916
  5. METHOTREXATE [Suspect]
     Dosage: SEE IMAGE
     Dates: start: 20050913
  6. ACETAMINOPHEN [Concomitant]
  7. ALLOPURINOL [Concomitant]
  8. CEFAZOLIN [Concomitant]
  9. CHLORHEXIDINE [Concomitant]
  10. GENTAMICIN [Concomitant]
  11. MORPHINE [Concomitant]
  12. ONDANSETRON [Concomitant]
  13. PIPERCILLIN [Concomitant]
  14. RANITIDINE [Concomitant]
  15. SEPTRA [Concomitant]
  16. SODIUM BICARBONATE [Concomitant]

REACTIONS (7)
  - ABNORMAL BEHAVIOUR [None]
  - CEREBRAL DISORDER [None]
  - HALLUCINATION [None]
  - HEMIPLEGIA [None]
  - SCREAMING [None]
  - SPEECH DISORDER [None]
  - VASOSPASM [None]
